FAERS Safety Report 9495556 (Version 1)
Quarter: 2013Q3

REPORT INFORMATION
  Report Type: Spontaneous
  Country: US (occurrence: US)
  Receive Date: 20130903
  Receipt Date: 20130903
  Transmission Date: 20140515
  Serious: Yes (Hospitalization)
  Sender: FDA-Public Use
  Company Number: US-TEVA-428885USA

PATIENT
  Sex: Female

DRUGS (1)
  1. NUVIGIL [Suspect]
     Dosage: 75 MILLIGRAM DAILY;
     Route: 048

REACTIONS (4)
  - Chest pain [Unknown]
  - Dyspnoea [Unknown]
  - Dry mouth [Unknown]
  - Intentional overdose [Unknown]
